FAERS Safety Report 17434969 (Version 1)
Quarter: 2020Q1

REPORT INFORMATION
  Report Type: Spontaneous
  Country: US (occurrence: US)
  Receive Date: 20200203
  Receipt Date: 20200203
  Transmission Date: 20200409
  Serious: Yes (Hospitalization)
  Sender: FDA-Public Use
  Company Number: None

PATIENT
  Age: 74 Year
  Weight: 71 kg

DRUGS (1)
  1. SULFAMETHIZOLE/TRIMETHOPRIM (SULFAMETHIZOLE 800MG/TRIMETHOPRIM 160MG TAB) [Suspect]
     Active Substance: SULFAMETHIZOLE\TRIMETHOPRIM
     Indication: ORCHITIS
     Route: 048
     Dates: start: 20191217, end: 20191226

REACTIONS (2)
  - Acute kidney injury [None]
  - Rash [None]

NARRATIVE: CASE EVENT DATE: 20191226
